FAERS Safety Report 5787467-1 (Version None)
Quarter: 2008Q2

REPORT INFORMATION
  Report Type: 
  Country: None (occurrence: None)
  Receive Date: 20080625
  Receipt Date: 20080610
  Transmission Date: 20081010
  Serious: Yes (Other)
  Sender: FDA-Public Use
  Company Number: CH-GENENTECH-263004

PATIENT
  Sex: Female

DRUGS (1)
  1. HERCEPTIN [Suspect]
     Indication: BREAST CANCER
     Dosage: 6 MG/KG, Q3W
     Route: 042
     Dates: start: 20070601, end: 20080603

REACTIONS (2)
  - ONYCHOCLASIS [None]
  - SKIN FISSURES [None]
